FAERS Safety Report 10236102 (Version 1)
Quarter: 2014Q2

REPORT INFORMATION
  Report Type: Spontaneous
  Country: LB (occurrence: LB)
  Receive Date: 20140613
  Receipt Date: 20140613
  Transmission Date: 20141212
  Serious: Yes (Other)
  Sender: FDA-Public Use
  Company Number: LB-WATSON-2014-13139

PATIENT
  Age: 67 Year
  Sex: Female

DRUGS (1)
  1. PROPAFENONE (WATSON LABORATORIES) [Suspect]
     Indication: ATRIAL FIBRILLATION
     Dosage: 300 MG, DAILY
     Route: 065

REACTIONS (1)
  - Drug-induced liver injury [Recovered/Resolved]
